FAERS Safety Report 11514594 (Version 1)
Quarter: 2015Q3

REPORT INFORMATION
  Report Type: Spontaneous
  Country: BG (occurrence: BG)
  Receive Date: 20150916
  Receipt Date: 20150916
  Transmission Date: 20151125
  Serious: Yes (Hospitalization)
  Sender: FDA-Public Use
  Company Number: BG-ASTRAZENECA-2015SE89001

PATIENT
  Age: 50 Year
  Sex: Male

DRUGS (7)
  1. CLOPIDOGREL [Concomitant]
     Active Substance: CLOPIDOGREL BISULFATE
     Indication: ELECTROCARDIOGRAM ST SEGMENT ELEVATION
  2. CLOPIDOGREL [Concomitant]
     Active Substance: CLOPIDOGREL BISULFATE
     Indication: CHEST PAIN
     Dosage: 600 MG LOADING DOSE
  3. CLOPIDOGREL [Concomitant]
     Active Substance: CLOPIDOGREL BISULFATE
     Indication: CHEST PAIN
  4. ACETYLSALICYLIC ACID [Concomitant]
     Active Substance: ASPIRIN
     Indication: ELECTROCARDIOGRAM ST SEGMENT ELEVATION
  5. CRESTOR [Suspect]
     Active Substance: ROSUVASTATIN CALCIUM
     Route: 048
  6. CLOPIDOGREL [Concomitant]
     Active Substance: CLOPIDOGREL BISULFATE
     Indication: ELECTROCARDIOGRAM ST SEGMENT ELEVATION
     Dosage: 600 MG LOADING DOSE
  7. ACETYLSALICYLIC ACID [Concomitant]
     Active Substance: ASPIRIN
     Indication: CHEST PAIN

REACTIONS (3)
  - Electrocardiogram T wave inversion [Unknown]
  - Vascular stent thrombosis [Unknown]
  - Electrocardiogram ST segment elevation [Unknown]

NARRATIVE: CASE EVENT DATE: 20150205
